FAERS Safety Report 7814233-5 (Version None)
Quarter: 2011Q4

REPORT INFORMATION
  Report Type: 
  Country: None (occurrence: None)
  Receive Date: 20111014
  Receipt Date: 20111005
  Transmission Date: 20120403
  Serious: Yes (Other)
  Sender: FDA-Public Use
  Company Number: US-SANOFI-AVENTIS-2011SA066005

PATIENT
  Sex: Female

DRUGS (1)
  1. ALLEGRA D 24 HOUR [Suspect]
     Route: 048

REACTIONS (2)
  - BACK INJURY [None]
  - ROAD TRAFFIC ACCIDENT [None]
